FAERS Safety Report 5210992-9 (Version None)
Quarter: 2007Q1

REPORT INFORMATION
  Report Type: 
  Country: None (occurrence: None)
  Receive Date: 20070117
  Receipt Date: 20070108
  Transmission Date: 20070707
  Serious: Yes (Hospitalization)
  Sender: FDA-Public Use
  Company Number: CH-PFIZER INC-2007002395

PATIENT
  Sex: Female

DRUGS (2)
  1. SERTRALINE [Suspect]
     Indication: DEPRESSION
     Route: 048
     Dates: start: 20061006, end: 20061020
  2. ZOMIG [Interacting]
     Indication: MIGRAINE
     Route: 048

REACTIONS (2)
  - DRUG INTERACTION [None]
  - DYSAESTHESIA [None]
